FAERS Safety Report 20920078 (Version 1)
Quarter: 2022Q2

REPORT INFORMATION
  Report Type: Spontaneous
  Country: US (occurrence: None)
  Receive Date: 20220605
  Receipt Date: 20220605
  Transmission Date: 20220721
  Serious: Yes (Life-Threatening)
  Sender: FDA-Public Use
  Company Number: None

PATIENT
  Age: 45 Year
  Sex: Female
  Weight: 152.1 kg

DRUGS (7)
  1. TOPIRAMATE [Suspect]
     Active Substance: TOPIRAMATE
     Indication: Migraine
     Dates: start: 20220511, end: 20220515
  2. FAMOTIDINE [Concomitant]
     Active Substance: FAMOTIDINE
  3. CITALOPRAM [Concomitant]
     Active Substance: CITALOPRAM HYDROBROMIDE
  4. hydochlorthiazaide [Concomitant]
  5. LOSARTAN [Concomitant]
     Active Substance: LOSARTAN
  6. KEPPRA [Concomitant]
     Active Substance: LEVETIRACETAM
  7. ASPIRIN [Concomitant]
     Active Substance: ASPIRIN

REACTIONS (2)
  - Suicidal ideation [None]
  - Gait inability [None]

NARRATIVE: CASE EVENT DATE: 20220511
